FAERS Safety Report 8112336 (Version 2)
Quarter: 2012Q4

REPORT INFORMATION
  Report Type: 
  Country: CA (occurrence: CA)
  Receive Date: 20110830
  Receipt Date: 20121016
  Transmission Date: 20130627
  Serious: Yes (Hospitalization, Other)
  Sender: FDA-Public Use
  Company Number: CA-BRISTOL-MYERS SQUIBB COMPANY-16007916

PATIENT
  Age: 33 Year
  Sex: Female

DRUGS (1)
  1. COUMADIN [Suspect]
     Dosage: Initially given 7.2 mg,then reduced to 6mg
     Route: 042

REACTIONS (2)
  - Infection [Unknown]
  - Thrombosis [Unknown]
